FAERS Safety Report 21789473 (Version 11)
Quarter: 2023Q1

REPORT INFORMATION
  Report Type: Report from Study
  Country: TR (occurrence: None)
  Receive Date: 20221228
  Receipt Date: 20230323
  Transmission Date: 20230417
  Serious: Yes (Hospitalization)
  Sender: FDA-Public Use
  Company Number: TR-Eisai Medical Research-EC-2022-128225

PATIENT
  Age: 52 Year
  Sex: Female
  Weight: 60.4 kg

DRUGS (11)
  1. LENVATINIB [Suspect]
     Active Substance: LENVATINIB
     Indication: Hepatocellular carcinoma
     Route: 048
     Dates: start: 20220707, end: 20221114
  2. LENVATINIB [Suspect]
     Active Substance: LENVATINIB
     Route: 048
     Dates: start: 20221221, end: 20230106
  3. VIBOSTOLIMAB [Suspect]
     Active Substance: VIBOSTOLIMAB
     Indication: Hepatocellular carcinoma
     Dosage: VIBOSTOLIMAB (MK-7684) 200 MG (+) PEMBROLIZUMAB (MK-3475) 200 MG (MK-7684A)
     Route: 042
     Dates: start: 20220707, end: 20221019
  4. VIBOSTOLIMAB [Suspect]
     Active Substance: VIBOSTOLIMAB
     Dosage: VIBOSTOLIMAB (MK-7684) 200 MG (+) PEMBROLIZUMAB (MK-3475) 200 MG (MK-7684A)
     Route: 042
     Dates: start: 20221109, end: 20230111
  5. KEPPRA [Concomitant]
     Active Substance: LEVETIRACETAM
     Dates: start: 201201
  6. EXFORGE [Concomitant]
     Active Substance: AMLODIPINE BESYLATE\VALSARTAN
     Dates: start: 201401
  7. METFORMIN HYDROCHLORIDE [Concomitant]
     Active Substance: METFORMIN HYDROCHLORIDE
     Dates: start: 202101
  8. CREBROS [Concomitant]
     Dates: start: 200701
  9. ENOXAPARIN SODIUM [Concomitant]
     Active Substance: ENOXAPARIN SODIUM
     Route: 030
     Dates: start: 20220527
  10. PEMBROLIZUMAB [Suspect]
     Active Substance: PEMBROLIZUMAB
     Dates: start: 20220707
  11. PEMBROLIZUMAB [Suspect]
     Active Substance: PEMBROLIZUMAB
     Dates: start: 20221109

REACTIONS (1)
  - Hypothyroidism [Recovering/Resolving]

NARRATIVE: CASE EVENT DATE: 20221108
